FAERS Safety Report 20249167 (Version 1)
Quarter: 2021Q4

REPORT INFORMATION
  Report Type: Spontaneous
  Country: US (occurrence: None)
  Receive Date: 20211228
  Receipt Date: 20211228
  Transmission Date: 20220303
  Serious: Yes (Hospitalization)
  Sender: FDA-Public Use
  Company Number: None

PATIENT
  Sex: Female

DRUGS (17)
  1. SILDENAFIL [Suspect]
     Active Substance: SILDENAFIL
     Indication: Cardiac disorder
     Route: 048
     Dates: start: 20180119
  2. ALPRAZOLAM TAB [Concomitant]
  3. ATORVASTATIN [Concomitant]
     Active Substance: ATORVASTATIN
  4. BASAGLAR INJ [Concomitant]
  5. CALCIUM\VITAMIN D [Concomitant]
     Active Substance: CALCIUM\VITAMIN D
  6. GAVISCON CHW [Concomitant]
  7. HUMALOG INJ [Concomitant]
  8. IMODIUM A-D TAB [Concomitant]
  9. KLOR-CON 10 TAB [Concomitant]
  10. LEVOTHYROXIN TAB [Concomitant]
  11. METOPROL SUC TAB [Concomitant]
  12. MULTIPLE VIT TAB [Concomitant]
  13. PAROXETINE TAB [Concomitant]
  14. SILDENAFIL [Concomitant]
     Active Substance: SILDENAFIL
  15. SPIRONOLACT TAB [Concomitant]
  16. TORSEMIDE TAB [Concomitant]
  17. WARFARIN TAB [Concomitant]

REACTIONS (1)
  - Fluid retention [None]
